FAERS Safety Report 7303930-6 (Version None)
Quarter: 2011Q1

REPORT INFORMATION
  Report Type: 
  Country: None (occurrence: None)
  Receive Date: 20110221
  Receipt Date: 20110211
  Transmission Date: 20110831
  Serious: Yes (Hospitalization)
  Sender: FDA-Public Use
  Company Number: SE-ROCHE-759544

PATIENT

DRUGS (1)
  1. ROACTEMRA [Suspect]
     Route: 065
     Dates: start: 20110202

REACTIONS (3)
  - ARTHRALGIA [None]
  - HEADACHE [None]
  - ARTHRITIS [None]
